FAERS Safety Report 18056004 (Version 1)
Quarter: 2020Q3

REPORT INFORMATION
  Report Type: Spontaneous
  Country: DE (occurrence: DE)
  Receive Date: 20200722
  Receipt Date: 20200722
  Transmission Date: 20201103
  Serious: Yes (Other)
  Sender: FDA-Public Use
  Company Number: DE-ASTRAZENECA-2020SE89351

PATIENT
  Age: 75 Year
  Sex: Male

DRUGS (1)
  1. BRILIQUE [Suspect]
     Active Substance: TICAGRELOR
     Indication: MYOCARDIAL INFARCTION
     Dosage: 90.0MG UNKNOWN
     Route: 048

REACTIONS (7)
  - Renal impairment [Unknown]
  - Gingivitis [Unknown]
  - Dyspnoea [Unknown]
  - Ureterolithiasis [Unknown]
  - Fall [Unknown]
  - Dizziness [Unknown]
  - Contusion [Unknown]
